FAERS Safety Report 7572653-0 (Version None)
Quarter: 2011Q2

REPORT INFORMATION
  Report Type: 
  Country: None (occurrence: None)
  Receive Date: 20110627
  Receipt Date: 20090720
  Transmission Date: 20111010
  Serious: No
  Sender: FDA-Public Use
  Company Number: 2009BI022565

PATIENT
  Sex: Female

DRUGS (2)
  1. TYSABRI [Suspect]
     Route: 042
     Dates: start: 20110121, end: 20110518
  2. TYSABRI [Suspect]
     Indication: MULTIPLE SCLEROSIS
     Route: 042
     Dates: start: 20061109, end: 20100414

REACTIONS (7)
  - PAIN IN EXTREMITY [None]
  - CATARACT OPERATION [None]
  - CATARACT [None]
  - STRESS [None]
  - CONFUSIONAL STATE [None]
  - RETINAL DISORDER [None]
  - DRUG SPECIFIC ANTIBODY PRESENT [None]
